FAERS Safety Report 5642498-7 (Version None)
Quarter: 2008Q1

REPORT INFORMATION
  Report Type: 
  Country: None (occurrence: None)
  Receive Date: 20080227
  Receipt Date: 20080227
  Transmission Date: 20080703
  Serious: Yes (Disabling, Other)
  Sender: FDA-Public Use
  Company Number: None

PATIENT
  Age: 63 Year
  Sex: Female

DRUGS (9)
  1. FOSAMAX [Suspect]
     Indication: OSTEOPENIA
     Dosage: 10MG/DAILY  2-3 YRS
     Dates: start: 19980901
  2. FOSAMAX [Suspect]
     Dosage: 70 MG/WKLY 5-6 YRS
     Dates: end: 20061001
  3. EFFEXOR [Concomitant]
  4. AMITRIPTYLINE HCL [Concomitant]
  5. NEXIUM [Concomitant]
  6. TRICOR [Concomitant]
  7. TOPAMAX [Concomitant]
  8. SOMA [Concomitant]
  9. ZOCOR [Concomitant]

REACTIONS (2)
  - BONE DISORDER [None]
  - OSTEONECROSIS [None]
